FAERS Safety Report 7205361-6 (Version None)
Quarter: 2010Q4

REPORT INFORMATION
  Report Type: 
  Country: None (occurrence: None)
  Receive Date: 20101231
  Receipt Date: 20101223
  Transmission Date: 20110411
  Serious: Yes (Other)
  Sender: FDA-Public Use
  Company Number: US-US-EMD SERONO, INC.-7033012

PATIENT
  Sex: Female

DRUGS (1)
  1. REBIF [Suspect]
     Indication: MULTIPLE SCLEROSIS
     Route: 058
     Dates: start: 20100326

REACTIONS (6)
  - COGNITIVE DISORDER [None]
  - HERPES VIRUS INFECTION [None]
  - RETINAL DISORDER [None]
  - RETINAL TEAR [None]
  - STRESS [None]
  - VITREOUS FLOATERS [None]
